FAERS Safety Report 10778542 (Version 2)
Quarter: 2015Q1

REPORT INFORMATION
  Report Type: Spontaneous
  Country: AT (occurrence: AT)
  Receive Date: 20150210
  Receipt Date: 20150211
  Transmission Date: 20150721
  Serious: No
  Sender: FDA-Public Use
  Company Number: AT-ASTRAZENECA-2015SE10767

PATIENT
  Age: 23 Year
  Sex: Female

DRUGS (6)
  1. ZYPREXA [Concomitant]
     Active Substance: OLANZAPINE
  2. SEROQUEL [Suspect]
     Active Substance: QUETIAPINE FUMARATE
     Route: 048
     Dates: start: 20141001
  3. LEPONEX [Suspect]
     Active Substance: CLOZAPINE
     Route: 065
     Dates: start: 20141012
  4. DEPAKINE CR [Concomitant]
     Active Substance: VALPROATE SODIUM
     Dates: start: 20141010
  5. TEMESTA [Concomitant]
     Active Substance: LORAZEPAM
     Dates: start: 20141010
  6. RISPERDAL [Suspect]
     Active Substance: RISPERIDONE
     Route: 065
     Dates: start: 20141029, end: 20141118

REACTIONS (2)
  - Hyperprolactinaemia [Recovered/Resolved]
  - Prolactinoma [Recovered/Resolved]

NARRATIVE: CASE EVENT DATE: 20141113
